FAERS Safety Report 22283638 (Version 1)
Quarter: 2023Q2

REPORT INFORMATION
  Report Type: Spontaneous
  Country: US (occurrence: US)
  Receive Date: 20230504
  Receipt Date: 20230504
  Transmission Date: 20230722
  Serious: Yes (Hospitalization, Other)
  Sender: FDA-Public Use
  Company Number: US-BAYER-2023A058006

PATIENT
  Age: 26 Year
  Sex: Female

DRUGS (4)
  1. ASPIRIN [Suspect]
     Active Substance: ASPIRIN
  2. ENOXAPARIN [Concomitant]
     Active Substance: ENOXAPARIN
  3. WARFARIN [Concomitant]
     Active Substance: WARFARIN
  4. HEPARIN [Concomitant]
     Active Substance: HEPARIN SODIUM

REACTIONS (6)
  - Premature delivery [None]
  - Vaginal haemorrhage [None]
  - Labelled drug-drug interaction medication error [None]
  - Maternal exposure during pregnancy [None]
  - Contraindicated product administered [None]
  - Anaemia [None]
